FAERS Safety Report 14944264 (Version 1)
Quarter: 2018Q2

REPORT INFORMATION
  Report Type: Report from Study
  Country: BR (occurrence: BR)
  Receive Date: 20180528
  Receipt Date: 20180528
  Transmission Date: 20180711
  Serious: Yes (Death, Hospitalization)
  Sender: FDA-Public Use
  Company Number: PHHY2018BR009270

PATIENT
  Sex: Male
  Weight: 80 kg

DRUGS (1)
  1. ACLASTA [Suspect]
     Active Substance: ZOLEDRONIC ACID
     Indication: OSTEOPOROSIS
     Dosage: 1 DF (5 MG/100 ML), Q12MO
     Route: 042

REACTIONS (5)
  - Bone pain [Recovered/Resolved]
  - Gastric ulcer perforation [Fatal]
  - Skeletal injury [Recovered/Resolved]
  - Gait disturbance [Recovered/Resolved]
  - Nosocomial infection [Unknown]
